FAERS Safety Report 7031603-6 (Version None)
Quarter: 2010Q4

REPORT INFORMATION
  Report Type: 
  Country: None (occurrence: None)
  Receive Date: 20101006
  Receipt Date: 20101006
  Transmission Date: 20110411
  Serious: No
  Sender: FDA-Public Use
  Company Number: None

PATIENT
  Sex: 0

DRUGS (2)
  1. FENTANYL [Suspect]
     Dosage: 50 UG
     Route: 061
     Dates: start: 20100905
  2. FENTANYL [Suspect]

REACTIONS (8)
  - DRUG WITHDRAWAL SYNDROME [None]
  - FEAR [None]
  - HYPERHIDROSIS [None]
  - PAIN [None]
  - PRODUCT ADHESION ISSUE [None]
  - PRODUCT PACKAGING QUANTITY ISSUE [None]
  - PRODUCT TAMPERING [None]
  - TREMOR [None]
